FAERS Safety Report 6037321-5 (Version None)
Quarter: 2009Q1

REPORT INFORMATION
  Report Type: 
  Country: None (occurrence: None)
  Receive Date: 20090114
  Receipt Date: 20090107
  Transmission Date: 20090719
  Serious: Yes (Other)
  Sender: FDA-Public Use
  Company Number: PHEH2009US00589

PATIENT
  Sex: Male

DRUGS (6)
  1. AREDIA [Suspect]
     Indication: MULTIPLE MYELOMA
     Dosage: 90MG IV MONTHLY
     Route: 042
     Dates: start: 19970101, end: 20030101
  2. ZOMETA [Suspect]
     Indication: MULTIPLE MYELOMA
     Dosage: 4MG IV MONTHLY
     Route: 042
     Dates: start: 20030101
  3. VELCADE [Concomitant]
     Indication: CHEMOTHERAPY
     Dosage: UNK
     Dates: start: 20060101
  4. DECADRON                                /CAN/ [Concomitant]
  5. LASIX [Concomitant]
  6. GEMFIBROZIL [Concomitant]

REACTIONS (4)
  - BONE DISORDER [None]
  - IMPAIRED HEALING [None]
  - ORAL PAIN [None]
  - STEM CELL TRANSPLANT [None]
